FAERS Safety Report 12897147 (Version 1)
Quarter: 2016Q4

REPORT INFORMATION
  Report Type: Spontaneous
  Country: US (occurrence: US)
  Receive Date: 20161029
  Receipt Date: 20161029
  Transmission Date: 20170207
  Serious: Yes (Hospitalization)
  Sender: FDA-Public Use
  Company Number: None

PATIENT
  Age: 33 Year
  Sex: Female
  Weight: 79.65 kg

DRUGS (11)
  1. CEPHALEXIN. [Concomitant]
     Active Substance: CEPHALEXIN
  2. GABAPENTIN. [Concomitant]
     Active Substance: GABAPENTIN
  3. FLUVOXAMINE 100MG ANI PHARMACEUTICALS [Suspect]
     Active Substance: FLUVOXAMINE MALEATE
     Indication: DEPRESSION
     Route: 048
     Dates: start: 20160427, end: 20160712
  4. FLUVOXAMINE 100MG ANI PHARMACEUTICALS [Suspect]
     Active Substance: FLUVOXAMINE MALEATE
     Indication: POST-TRAUMATIC STRESS DISORDER
     Route: 048
     Dates: start: 20160427, end: 20160712
  5. SULFAMETHOXAZOLE/TRIMETHOPRIM [Concomitant]
     Active Substance: SULFAMETHOXAZOLE\TRIMETHOPRIM
  6. CELECOXIB. [Concomitant]
     Active Substance: CELECOXIB
  7. ADDERALL XR [Concomitant]
     Active Substance: AMPHETAMINE ASPARTATE\AMPHETAMINE SULFATE\DEXTROAMPHETAMINE SACCHARATE\DEXTROAMPHETAMINE SULFATE
  8. HYDROCODONE/ACETAMINOPHEN [Concomitant]
     Active Substance: ACETAMINOPHEN\HYDROCODONE
  9. OXYCODONE/ACETAMINOPHEN [Concomitant]
     Active Substance: ACETAMINOPHEN\OXYCODONE HYDROCHLORIDE
  10. MAGNESIUM OXIDE. [Concomitant]
     Active Substance: MAGNESIUM OXIDE
  11. CYCLOBENZAPRINE [Concomitant]
     Active Substance: CYCLOBENZAPRINE

REACTIONS (6)
  - Tardive dyskinesia [None]
  - Tachycardia [None]
  - Hyperhidrosis [None]
  - Confusional state [None]
  - Serotonin syndrome [None]
  - Drug interaction [None]

NARRATIVE: CASE EVENT DATE: 20160712
